FAERS Safety Report 20545324 (Version 1)
Quarter: 2022Q1

REPORT INFORMATION
  Report Type: Spontaneous
  Country: DE (occurrence: DE)
  Receive Date: 20220303
  Receipt Date: 20220303
  Transmission Date: 20220423
  Serious: Yes (Other)
  Sender: FDA-Public Use
  Company Number: ALC2022DE001114

PATIENT

DRUGS (1)
  1. SIMBRINZA [Suspect]
     Active Substance: BRIMONIDINE TARTRATE\BRINZOLAMIDE
     Indication: Intraocular pressure increased
     Dosage: 1 DRP (1-0-1 (LEFT AND RIGHT)) IN THE MORNING AND IN THE EVENING
     Route: 065
     Dates: start: 202111

REACTIONS (6)
  - Diabetes mellitus [Unknown]
  - Memory impairment [Unknown]
  - Micturition urgency [Not Recovered/Not Resolved]
  - Defaecation urgency [Not Recovered/Not Resolved]
  - Vitamin D deficiency [Unknown]
  - Dry mouth [Unknown]

NARRATIVE: CASE EVENT DATE: 20220221
